FAERS Safety Report 6061892-6 (Version None)
Quarter: 2009Q1

REPORT INFORMATION
  Report Type: 
  Country: None (occurrence: None)
  Receive Date: 20090202
  Receipt Date: 20090122
  Transmission Date: 20090719
  Serious: Yes (Hospitalization)
  Sender: FDA-Public Use
  Company Number: PHHY2009IL02318

PATIENT
  Age: 60 Year
  Sex: Female

DRUGS (4)
  1. TASIGNA [Suspect]
     Indication: CHRONIC MYELOID LEUKAEMIA
     Dosage: 800 MG DAILY
     Route: 048
  2. TASIGNA [Suspect]
     Dosage: 400 MG DAILY
     Route: 048
  3. TASIGNA [Suspect]
     Dosage: 600 MG DAILY
     Route: 048
  4. MESALAZINE [Concomitant]
     Dosage: UNK

REACTIONS (5)
  - BONE PAIN [None]
  - ERYTHEMA [None]
  - HYPERSENSITIVITY [None]
  - MYALGIA [None]
  - OEDEMA PERIPHERAL [None]
